FAERS Safety Report 10273367 (Version 1)
Quarter: 2014Q1

REPORT INFORMATION
  Report Type: Spontaneous
  Country: US (occurrence: None)
  Receive Date: 20140306
  Receipt Date: 20140306
  Transmission Date: 20141002
  Serious: Yes (Death, Hospitalization)
  Sender: FDA-Public Use
  Company Number: 163-21880-13021225

PATIENT
  Age: 74 Year
  Sex: Male
  Weight: 96.5 kg

DRUGS (16)
  1. REVLIMID [Suspect]
     Indication: PLASMA CELL MYELOMA
     Dosage: 25 MG 1 IN 1 D, PO 16AUG2012 -UNKNOWN THERAPY DATE
     Route: 048
     Dates: start: 20120816
  2. DEXAMETHASONE (DEXAMETHASONE) (UNKNOWN) [Suspect]
     Indication: PLASMA CELL MYELOMA
     Route: 048
     Dates: start: 20120816
  3. ELOTUZUMAB [Suspect]
     Indication: PLASMA CELL MYELOMA
     Dosage: 10 MG/KG .  1 IN 1 D, IV
     Route: 042
     Dates: start: 20120817
  4. ASPIRIN (ACETYLSALICYLIC ACID) [Concomitant]
  5. ATENOLOL [Concomitant]
  6. WARFARIN [Concomitant]
  7. CENTRUM SILVER [Concomitant]
  8. ROSUVASTATIN [Concomitant]
  9. OMEPRAZOLE [Concomitant]
  10. HYDRALAZINE [Concomitant]
  11. ISOSORBIDE MONONITRATE [Concomitant]
  12. OCUVITE [Concomitant]
  13. AQUAPHOR (XIPAMIDE) [Concomitant]
  14. ALBUTEROL SULFATE (SALBUTAMOL SULFATE) [Concomitant]
  15. ACYCLOVIR [Concomitant]
  16. ZITHROMAX [Concomitant]

REACTIONS (1)
  - Pneumonia [None]
